FAERS Safety Report 19043906 (Version 1)
Quarter: 2021Q1

REPORT INFORMATION
  Report Type: Spontaneous
  Country: CN (occurrence: CN)
  Receive Date: 20210322
  Receipt Date: 20210322
  Transmission Date: 20210420
  Serious: Yes (Other)
  Sender: FDA-Public Use
  Company Number: CN-PFIZER INC-2021264230

PATIENT
  Age: 56 Year
  Sex: Male
  Weight: 76 kg

DRUGS (5)
  1. METHYLPREDNISOLONE SODIUM SUCCINATE. [Suspect]
     Active Substance: METHYLPREDNISOLONE SODIUM SUCCINATE
     Indication: THERAPEUTIC PROCEDURE
     Dosage: 40 MG, 1X/DAY
     Route: 041
     Dates: start: 20210219, end: 20210225
  2. ALLISARTAN ISOPROXIL [Suspect]
     Active Substance: ALLISARTAN ISOPROXIL
     Indication: BLOOD PRESSURE MANAGEMENT
     Dosage: 240 MG, 1X/DAY
     Route: 048
     Dates: start: 20210219, end: 20210223
  3. METHYLPREDNISOLONE SODIUM SUCCINATE. [Suspect]
     Active Substance: METHYLPREDNISOLONE SODIUM SUCCINATE
     Indication: MUSCULOSKELETAL DISCOMFORT
  4. SODIUM CHLORIDE. [Concomitant]
     Active Substance: SODIUM CHLORIDE
     Indication: VEHICLE SOLUTION USE
     Dosage: 100 ML, 1X/DAY
     Route: 041
     Dates: start: 20210219, end: 20210225
  5. SODIUM CHLORIDE. [Concomitant]
     Active Substance: SODIUM CHLORIDE
     Indication: MUSCULOSKELETAL DISCOMFORT

REACTIONS (4)
  - Blood creatine phosphokinase increased [Unknown]
  - White blood cell count increased [Unknown]
  - Myositis [Unknown]
  - Neutrophil count increased [Unknown]

NARRATIVE: CASE EVENT DATE: 20210220
